FAERS Safety Report 20641587 (Version 1)
Quarter: 2022Q1

REPORT INFORMATION
  Report Type: Spontaneous
  Country: DE (occurrence: DE)
  Receive Date: 20220328
  Receipt Date: 20220328
  Transmission Date: 20220423
  Serious: Yes (Other)
  Sender: FDA-Public Use
  Company Number: DE-AMGEN-DEUNI2020128301

PATIENT
  Age: 54 Year
  Sex: Female
  Weight: 68 kg

DRUGS (20)
  1. LEUCOVORIN [Suspect]
     Active Substance: LEUCOVORIN
     Indication: Colorectal cancer metastatic
     Dosage: 1440 MILLIGRAM
     Route: 065
     Dates: start: 20200428
  2. LEUCOVORIN [Suspect]
     Active Substance: LEUCOVORIN
     Dosage: 720 MILLIGRAM
     Route: 065
     Dates: start: 20200512
  3. LEUCOVORIN [Suspect]
     Active Substance: LEUCOVORIN
     Dosage: 715 MILLIGRAM
     Route: 065
     Dates: start: 20200526
  4. LEUCOVORIN [Suspect]
     Active Substance: LEUCOVORIN
     Dosage: 720 MILLIGRAM
     Route: 065
     Dates: start: 20200610
  5. IRINOTECAN [Suspect]
     Active Substance: IRINOTECAN
     Indication: Colorectal cancer metastatic
     Dosage: 700 MILLIGRAM
     Route: 065
     Dates: start: 20200428
  6. IRINOTECAN [Suspect]
     Active Substance: IRINOTECAN
     Dosage: 350 MILLIGRAM
     Route: 065
     Dates: start: 20200512
  7. IRINOTECAN [Suspect]
     Active Substance: IRINOTECAN
     Dosage: 320 MILLIGRAM
     Route: 065
     Dates: start: 20200526
  8. FLUOROURACIL [Suspect]
     Active Substance: FLUOROURACIL
     Indication: Colorectal cancer metastatic
     Dosage: 8600 MILLIGRAM
     Route: 042
     Dates: start: 20200428
  9. FLUOROURACIL [Suspect]
     Active Substance: FLUOROURACIL
     Dosage: 1440 MILLIGRAM
     Route: 040
     Dates: start: 20200428
  10. FLUOROURACIL [Suspect]
     Active Substance: FLUOROURACIL
     Dosage: 4300 MILLIGRAM
     Route: 042
     Dates: start: 20200512
  11. FLUOROURACIL [Suspect]
     Active Substance: FLUOROURACIL
     Dosage: 720 MILLIGRAM
     Route: 040
     Dates: start: 20200512
  12. FLUOROURACIL [Suspect]
     Active Substance: FLUOROURACIL
     Dosage: 4300 MILLIGRAM
     Route: 042
     Dates: start: 20200526
  13. FLUOROURACIL [Suspect]
     Active Substance: FLUOROURACIL
     Dosage: 715 MILLIGRAM
     Route: 040
     Dates: start: 20200526
  14. FLUOROURACIL [Suspect]
     Active Substance: FLUOROURACIL
     Dosage: 720 MILLIGRAM
     Route: 040
     Dates: start: 20200610
  15. VECTIBIX [Suspect]
     Active Substance: PANITUMUMAB
     Indication: Colorectal cancer metastatic
     Dosage: 410 MILLIGRAM
     Route: 042
     Dates: start: 20200526
  16. GRANISETRON HAMELN [Concomitant]
     Indication: Vomiting
     Dosage: 4 MILLIGRAM, CYCLICAL
     Route: 042
     Dates: start: 20200428
  17. DEXAMETHASONE [Concomitant]
     Active Substance: DEXAMETHASONE
     Indication: Vomiting
     Dosage: 4 MILLIGRAM, CYCLICAL
     Route: 042
     Dates: start: 20200428
  18. DOXYCYCLIN-RATIOPHARM [Concomitant]
     Indication: Rash
     Dosage: 200 MILLIGRAM, ONCE A DAY
     Route: 048
     Dates: start: 20200526
  19. DIMENHYDRINATE [Concomitant]
     Active Substance: DIMENHYDRINATE
     Indication: Vomiting
     Dosage: 1 DOSAGE FORM, AS NECESSARY
     Route: 042
     Dates: start: 20200526
  20. AKYNZEO [Concomitant]
     Active Substance: NETUPITANT\PALONOSETRON HYDROCHLORIDE
     Indication: Vomiting
     Dosage: 1 DOSAGE FORM, CYCLICAL
     Route: 048
     Dates: start: 20200526

REACTIONS (1)
  - Portal vein thrombosis [Recovered/Resolved]

NARRATIVE: CASE EVENT DATE: 20200729
